FAERS Safety Report 24102300 (Version 2)
Quarter: 2024Q3

REPORT INFORMATION
  Report Type: Spontaneous
  Country: FR (occurrence: FR)
  Receive Date: 20240717
  Receipt Date: 20240916
  Transmission Date: 20241017
  Serious: Yes (Other)
  Sender: ROCHE
  Company Number: FR-002147023-NVSC2024FR140964

PATIENT
  Age: 81 Year

DRUGS (4)
  1. LUCENTIS [Suspect]
     Active Substance: RANIBIZUMAB
     Indication: Product used for unknown indication
     Dosage: UNK
     Route: 065
     Dates: start: 20230728
  2. LUCENTIS [Suspect]
     Active Substance: RANIBIZUMAB
     Dosage: UNK
     Route: 065
     Dates: start: 20230929
  3. LUCENTIS [Suspect]
     Active Substance: RANIBIZUMAB
     Dosage: UNK
     Route: 065
     Dates: start: 20240119
  4. BEOVU [Suspect]
     Active Substance: BROLUCIZUMAB-DBLL
     Indication: Product used for unknown indication
     Dosage: UNK (INJECTION) (RIGHT EYE)
     Route: 050
     Dates: start: 20240329

REACTIONS (6)
  - Iridocyclitis [Unknown]
  - Visual acuity reduced [Unknown]
  - Retinal vasculitis [Unknown]
  - Vitritis [Unknown]
  - Eye inflammation [Recovered/Resolved]
  - Visual impairment [Unknown]
